FAERS Safety Report 18683741 (Version 1)
Quarter: 2020Q4

REPORT INFORMATION
  Report Type: Report from Study
  Country: US (occurrence: US)
  Receive Date: 20201230
  Receipt Date: 20201230
  Transmission Date: 20210114
  Serious: Yes (Other)
  Sender: FDA-Public Use
  Company Number: US-PFIZER INC-2020511730

PATIENT
  Age: 62 Year
  Sex: Female
  Weight: 75.6 kg

DRUGS (3)
  1. ATEZOLIZUMAB. [Suspect]
     Active Substance: ATEZOLIZUMAB
     Indication: SMALL CELL LUNG CANCER
     Dosage: UNK UNK, CYCLIC
     Dates: start: 20200930, end: 20201202
  2. TALAZOPARIB. [Suspect]
     Active Substance: TALAZOPARIB
     Indication: SMALL CELL LUNG CANCER
     Dosage: UNK UNK, CYCLIC
     Dates: start: 20200930, end: 20201203
  3. ATORVASTATIN [Concomitant]
     Active Substance: ATORVASTATIN

REACTIONS (2)
  - Hypokalaemia [Not Recovered/Not Resolved]
  - Alanine aminotransferase increased [Not Recovered/Not Resolved]

NARRATIVE: CASE EVENT DATE: 20201210
